FAERS Safety Report 9343720 (Version 2)
Quarter: 2013Q3

REPORT INFORMATION
  Report Type: Spontaneous
  Country: IT (occurrence: IT)
  Receive Date: 20130612
  Receipt Date: 20130808
  Transmission Date: 20140515
  Serious: Yes (Hospitalization)
  Sender: FDA-Public Use
  Company Number: IT-RANBAXY-2013R1-69912

PATIENT
  Age: 19 Year
  Sex: Male

DRUGS (2)
  1. PARACETAMOL [Suspect]
     Indication: INTENTIONAL SELF-INJURY
     Dosage: 30 G, QD
     Route: 048
     Dates: start: 20130429, end: 20130429
  2. ZERINOL [Suspect]
     Indication: INTENTIONAL SELF-INJURY
     Dosage: 2 DF, QD
     Route: 048
     Dates: start: 20130429, end: 20130429

REACTIONS (3)
  - Intentional self-injury [Recovering/Resolving]
  - Nausea [Recovering/Resolving]
  - Vomiting [Recovering/Resolving]
